FAERS Safety Report 5395357-1 (Version None)
Quarter: 2007Q3

REPORT INFORMATION
  Report Type: 
  Country: None (occurrence: None)
  Receive Date: 20070724
  Receipt Date: 20070724
  Transmission Date: 20080115
  Serious: Yes (Other)
  Sender: FDA-Public Use
  Company Number: A0665678A

PATIENT
  Age: 25 Year
  Sex: Female

DRUGS (1)
  1. ALLI [Suspect]
     Route: 048
     Dates: start: 20070709, end: 20070722

REACTIONS (4)
  - ANXIETY [None]
  - KIDNEY INFECTION [None]
  - NEPHROLITHIASIS [None]
  - PAIN [None]
